FAERS Safety Report 7459666-4 (Version None)
Quarter: 2011Q2

REPORT INFORMATION
  Report Type: 
  Country: None (occurrence: None)
  Receive Date: 20110505
  Receipt Date: 20110429
  Transmission Date: 20111010
  Serious: Yes (Other)
  Sender: FDA-Public Use
  Company Number: PHHY2009FR19652

PATIENT
  Sex: Female
  Weight: 75 kg

DRUGS (6)
  1. BI-PROFENID [Concomitant]
  2. ACLASTA [Suspect]
     Indication: OSTEITIS DEFORMANS
     Dosage: 5 MG, UNK
     Route: 042
     Dates: start: 20071115
  3. TRAMADOL [Concomitant]
     Indication: OSTEITIS DEFORMANS
     Dosage: UNK
     Dates: start: 20070901
  4. TRAMADOL HCL [Concomitant]
     Indication: OSTEITIS DEFORMANS
     Dosage: 2 DF DAILY
     Dates: start: 20070901
  5. ACUPAN [Concomitant]
     Indication: OSTEITIS DEFORMANS
     Dosage: UNK
     Dates: start: 20070901
  6. BIRODOGYL [Concomitant]
     Dosage: UNK
     Dates: start: 20080521

REACTIONS (23)
  - JAW DISORDER [None]
  - MUCOSAL HAEMORRHAGE [None]
  - PELVIC PAIN [None]
  - DENTAL NECROSIS [None]
  - MONOPLEGIA [None]
  - TOBACCO ABUSE [None]
  - PAIN [None]
  - SALIVA ALTERED [None]
  - DRUG INEFFECTIVE [None]
  - ARTHRALGIA [None]
  - OSTEONECROSIS [None]
  - PERIPHERAL NERVE LESION [None]
  - TOOTH LOSS [None]
  - CYST [None]
  - DENTAL CARIES [None]
  - BONE ABSCESS [None]
  - PERIODONTITIS [None]
  - GENERAL PHYSICAL CONDITION ABNORMAL [None]
  - POOR PERSONAL HYGIENE [None]
  - ABDOMINAL WALL ABSCESS [None]
  - GINGIVAL DISORDER [None]
  - VITAMIN D DEFICIENCY [None]
  - EATING DISORDER [None]
